FAERS Safety Report 11626937 (Version 1)
Quarter: 2015Q4

REPORT INFORMATION
  Report Type: Spontaneous
  Country: US (occurrence: US)
  Receive Date: 20151013
  Receipt Date: 20151013
  Transmission Date: 20160304
  Serious: Yes (Hospitalization)
  Sender: FDA-Public Use
  Company Number: US-RB PHARMACEUTICALS LIMITED-RB-074812-2015

PATIENT
  Age: 49 Year
  Sex: Female

DRUGS (2)
  1. BUPRENORPHINE. [Suspect]
     Active Substance: BUPRENORPHINE
     Indication: DRUG DEPENDENCE
     Dosage: UNK, DAILY
     Route: 030
     Dates: start: 201412, end: 20150106
  2. SUBOXONE [Suspect]
     Active Substance: BUPRENORPHINE HYDROCHLORIDE\NALOXONE HYDROCHLORIDE
     Indication: DRUG DEPENDENCE
     Dosage: UNK, DAILY
     Route: 060
     Dates: end: 20141229

REACTIONS (4)
  - Drug withdrawal syndrome [Recovered/Resolved]
  - Asthenia [Not Recovered/Not Resolved]
  - Drug detoxification [Unknown]
  - Drug dependence [Not Recovered/Not Resolved]

NARRATIVE: CASE EVENT DATE: 201412
